FAERS Safety Report 20189360 (Version 1)
Quarter: 2021Q4

REPORT INFORMATION
  Report Type: Spontaneous
  Country: AR (occurrence: AR)
  Receive Date: 20211215
  Receipt Date: 20211215
  Transmission Date: 20220303
  Serious: Yes (Other)
  Sender: FDA-Public Use
  Company Number: AR-PFIZER INC-202101710334

PATIENT
  Age: 65 Year
  Sex: Male

DRUGS (1)
  1. DACOMITINIB [Suspect]
     Active Substance: DACOMITINIB
     Indication: Lung adenocarcinoma
     Dosage: 45 MG, DAILY
     Dates: start: 202106

REACTIONS (5)
  - Chest injury [Unknown]
  - Rash [Unknown]
  - Erythema [Unknown]
  - Pain in extremity [Unknown]
  - Neoplasm progression [Unknown]

NARRATIVE: CASE EVENT DATE: 20210601
